FAERS Safety Report 7093623-5 (Version None)
Quarter: 2010Q4

REPORT INFORMATION
  Report Type: 
  Country: None (occurrence: None)
  Receive Date: 20101110
  Receipt Date: 20091016
  Transmission Date: 20110411
  Serious: No
  Sender: FDA-Public Use
  Company Number: US-KINGPHARMUSA00001-K200901286

PATIENT
  Sex: Male
  Weight: 83.9 kg

DRUGS (5)
  1. FLECTOR [Suspect]
     Indication: ARTHRALGIA
     Dosage: 1 PATCH EVERY 12 HOURS
     Route: 061
     Dates: start: 20091011
  2. LIPITOR [Concomitant]
     Indication: BLOOD CHOLESTEROL INCREASED
     Dosage: UNK
  3. NEXIUM [Concomitant]
     Dosage: UNK
  4. FLOMAX [Concomitant]
     Indication: PROSTATIC DISORDER
     Dosage: UNK
  5. ACTOS [Concomitant]
     Indication: DIABETES MELLITUS
     Dosage: UNK

REACTIONS (1)
  - APPLICATION SITE ERYTHEMA [None]
